FAERS Safety Report 17194262 (Version 1)
Quarter: 2019Q4

REPORT INFORMATION
  Report Type: Report from Study
  Country: None (occurrence: US)
  Receive Date: 20191224
  Receipt Date: 20191224
  Transmission Date: 20200122
  Serious: Yes (Other)
  Sender: FDA-Public Use
  Company Number: US-ABBVIE-19K-163-2983279-00

PATIENT
  Age: 58 Year
  Sex: Female

DRUGS (12)
  1. OXYCODON [Concomitant]
     Active Substance: OXYCODONE
     Indication: PRODUCT USED FOR UNKNOWN INDICATION
  2. HUMIRA [Suspect]
     Active Substance: ADALIMUMAB
     Route: 058
     Dates: end: 2019
  3. NAPROXEN. [Concomitant]
     Active Substance: NAPROXEN
     Indication: PRODUCT USED FOR UNKNOWN INDICATION
  4. LYRICA [Concomitant]
     Active Substance: PREGABALIN
     Indication: PRODUCT USED FOR UNKNOWN INDICATION
  5. MONTELUCAST [Concomitant]
     Active Substance: MONTELUKAST SODIUM
     Indication: PRODUCT USED FOR UNKNOWN INDICATION
  6. CELEBREX [Concomitant]
     Active Substance: CELECOXIB
     Indication: PRODUCT USED FOR UNKNOWN INDICATION
  7. HUMIRA [Suspect]
     Active Substance: ADALIMUMAB
     Indication: CROHN^S DISEASE
     Route: 058
     Dates: start: 201511, end: 201606
  8. HUMIRA [Suspect]
     Active Substance: ADALIMUMAB
     Route: 058
     Dates: start: 2016, end: 2016
  9. BACLOFEN. [Concomitant]
     Active Substance: BACLOFEN
     Indication: PRODUCT USED FOR UNKNOWN INDICATION
  10. HUMIRA [Suspect]
     Active Substance: ADALIMUMAB
     Indication: CROHN^S DISEASE
     Dosage: CITRATE FREE
     Route: 058
  11. COMBIVENT [Concomitant]
     Active Substance: ALBUTEROL SULFATE\IPRATROPIUM BROMIDE
     Indication: PRODUCT USED FOR UNKNOWN INDICATION
  12. CILOSTAZOL. [Concomitant]
     Active Substance: CILOSTAZOL
     Indication: PRODUCT USED FOR UNKNOWN INDICATION

REACTIONS (21)
  - Knee arthroplasty [Unknown]
  - Complication associated with device [Unknown]
  - Intestinal obstruction [Recovered/Resolved]
  - Cartilage injury [Recovering/Resolving]
  - Gait inability [Recovered/Resolved]
  - Immunosuppression [Not Recovered/Not Resolved]
  - Intestinal operation [Unknown]
  - Cyst [Unknown]
  - Spinal synovial cyst [Unknown]
  - Back pain [Recovering/Resolving]
  - Knee arthroplasty [Unknown]
  - Arthralgia [Unknown]
  - Injection site pain [Unknown]
  - Arthralgia [Not Recovered/Not Resolved]
  - Diarrhoea [Recovering/Resolving]
  - Sinusitis [Not Recovered/Not Resolved]
  - Intestinal resection [Recovering/Resolving]
  - Food intolerance [Unknown]
  - Neuropathy peripheral [Unknown]
  - Fall [Recovered/Resolved]
  - Spinal pain [Unknown]

NARRATIVE: CASE EVENT DATE: 201606
